FAERS Safety Report 25760917 (Version 1)
Quarter: 2025Q3

REPORT INFORMATION
  Report Type: Spontaneous
  Country: US (occurrence: US)
  Receive Date: 20250904
  Receipt Date: 20250904
  Transmission Date: 20251021
  Serious: Yes (Death, Other)
  Sender: AMGEN
  Company Number: US-AMGEN-USASP2025171166

PATIENT

DRUGS (4)
  1. PREDNISONE [Suspect]
     Active Substance: PREDNISONE
     Indication: Product used for unknown indication
     Dosage: 20 MILLIGRAM, QD
     Route: 065
  2. METHYLPREDNISOLONE [Concomitant]
     Active Substance: METHYLPREDNISOLONE
     Dosage: 125 MILLIGRAM, Q8H (FOR 3 DOSES)
     Route: 040
  3. MYCOPHENOLATE MOFETIL [Concomitant]
     Active Substance: MYCOPHENOLATE MOFETIL
     Dosage: 1000 MILLIGRAM, BID
  4. BASILIXIMAB [Concomitant]
     Active Substance: BASILIXIMAB
     Indication: Immunosuppressant drug therapy

REACTIONS (17)
  - Systemic mycosis [Fatal]
  - Empyema [Unknown]
  - Aspergillus infection [Unknown]
  - Mediastinitis [Unknown]
  - Endocarditis candida [Unknown]
  - Infective aortitis [Unknown]
  - Chorioretinitis [Unknown]
  - Bronchopulmonary aspergillosis [Unknown]
  - Pneumonia cryptococcal [Unknown]
  - Disseminated cryptococcosis [Unknown]
  - Wound infection fungal [Unknown]
  - Systemic candida [Unknown]
  - Fungal infection [Unknown]
  - Oesophagitis [Unknown]
  - Candida infection [Unknown]
  - Alternaria infection [Unknown]
  - Fusarium infection [Unknown]
